FAERS Safety Report 9184982 (Version 1)
Quarter: 2013Q1

REPORT INFORMATION
  Report Type: Spontaneous
  Country: IT (occurrence: IT)
  Receive Date: 20130325
  Receipt Date: 20130325
  Transmission Date: 20140127
  Serious: Yes (Hospitalization)
  Sender: FDA-Public Use
  Company Number: IT-ELI_LILLY_AND_COMPANY-IT201303004825

PATIENT
  Sex: Male
  Weight: 65 kg

DRUGS (4)
  1. GEMZAR [Suspect]
     Indication: PANCREATIC CARCINOMA
     Dosage: 1800 MG, UNK
     Route: 042
     Dates: start: 20121227
  2. CISPLATINO [Concomitant]
     Indication: PANCREATIC CARCINOMA
     Dosage: 45 MG, UNK
     Dates: start: 20121227
  3. TAMSULOSIN [Concomitant]
     Indication: BENIGN PROSTATIC HYPERPLASIA
     Dosage: 0.4 MG, UNK
     Route: 048
  4. AMILORIDE [Concomitant]
     Indication: HYPERTENSION
     Dosage: UNK
     Route: 048

REACTIONS (1)
  - Ischaemia [Recovered/Resolved]
